FAERS Safety Report 12428040 (Version 5)
Quarter: 2016Q2

REPORT INFORMATION
  Report Type: Spontaneous
  Country: ZA (occurrence: ZA)
  Receive Date: 20160602
  Receipt Date: 20160617
  Transmission Date: 20160815
  Serious: Yes (Death, Hospitalization, Other)
  Sender: FDA-Public Use
  Company Number: ZA-009507513-1605ZAF014201

PATIENT
  Age: 27 Year
  Sex: Female

DRUGS (2)
  1. MAXALT [Suspect]
     Active Substance: RIZATRIPTAN BENZOATE
     Indication: HEADACHE
     Dosage: DAILY DOSE: TOOK 10 MG TABLET AND THEN 2 HOURS LATER ANOTHER 10 MG TABLET
     Route: 048
     Dates: start: 20160527
  2. DISPRIN [Concomitant]
     Active Substance: ASPIRIN
     Dosage: UNK

REACTIONS (10)
  - Rhabdomyolysis [Unknown]
  - Musculoskeletal stiffness [Unknown]
  - Withdrawal of life support [Fatal]
  - Nausea [Unknown]
  - Renal failure [Unknown]
  - Muscle enzyme increased [Unknown]
  - Delirium [Unknown]
  - Headache [Unknown]
  - Paralysis [Unknown]
  - Dizziness [Unknown]

NARRATIVE: CASE EVENT DATE: 2016
